FAERS Safety Report 16635102 (Version 6)
Quarter: 2019Q3

REPORT INFORMATION
  Report Type: Spontaneous
  Country: US (occurrence: US)
  Receive Date: 20190726
  Receipt Date: 20190827
  Transmission Date: 20191004
  Serious: Yes (Hospitalization)
  Sender: FDA-Public Use
  Company Number: US-CELGENEUS-USA-20190707342

PATIENT
  Age: 85 Year
  Sex: Female

DRUGS (7)
  1. LASIX [Concomitant]
     Active Substance: FUROSEMIDE
     Indication: CORONARY ARTERY DISEASE
     Dosage: 40 MILLIGRAM
     Route: 048
  2. REVLIMID [Suspect]
     Active Substance: LENALIDOMIDE
     Indication: 5Q MINUS SYNDROME
     Dosage: 10 MILLIGRAM
     Route: 048
     Dates: start: 20190613, end: 20190702
  3. SIMVASTATIN. [Concomitant]
     Active Substance: SIMVASTATIN
     Indication: CORONARY ARTERY DISEASE
     Dosage: 40 MILLIGRAM
     Route: 048
  4. ASPIRIN. [Concomitant]
     Active Substance: ASPIRIN
     Indication: THROMBOSIS PROPHYLAXIS
     Dosage: 325 MILLIGRAM
     Route: 048
  5. AMLODIPINE [Concomitant]
     Active Substance: AMLODIPINE BESYLATE
     Indication: HYPERTENSION
     Dosage: 10 MILLIGRAM
     Route: 048
  6. REVLIMID [Suspect]
     Active Substance: LENALIDOMIDE
     Dosage: 2.5 MILLIGRAM
     Route: 048
     Dates: start: 20190729
  7. REVLIMID [Suspect]
     Active Substance: LENALIDOMIDE
     Indication: REFRACTORY ANAEMIA WITH AN EXCESS OF BLASTS
     Dosage: 10 MILLIGRAM
     Route: 048
     Dates: start: 20190720

REACTIONS (5)
  - Myalgia [Recovering/Resolving]
  - Musculoskeletal pain [Unknown]
  - Pain in extremity [Unknown]
  - Neck pain [Unknown]
  - Muscle fatigue [Recovering/Resolving]

NARRATIVE: CASE EVENT DATE: 2019
